FAERS Safety Report 7782077-9 (Version None)
Quarter: 2011Q3

REPORT INFORMATION
  Report Type: 
  Country: None (occurrence: None)
  Receive Date: 20110927
  Receipt Date: 20110919
  Transmission Date: 20111222
  Serious: Yes (Death, Hospitalization, Other)
  Sender: FDA-Public Use
  Company Number: US-ELI_LILLY_AND_COMPANY-US201106004594

PATIENT
  Sex: Male
  Weight: 203.63 kg

DRUGS (8)
  1. CARAFATE [Concomitant]
     Dosage: 10 ML, QID
  2. ZETIA [Concomitant]
     Dosage: 10 MG, QD
     Dates: start: 20080201
  3. NOVOLOG [Concomitant]
     Indication: TYPE 2 DIABETES MELLITUS
     Dosage: UNK
  4. BYETTA [Suspect]
     Indication: TYPE 2 DIABETES MELLITUS
     Dosage: 10 UG, BID
     Route: 058
     Dates: start: 20051101
  5. CARAFATE [Concomitant]
     Dosage: 10 ML, QID
     Route: 048
  6. CELEXA [Concomitant]
     Dosage: 20 MG, QD
     Dates: start: 20080901
  7. METOPROLOL TARTRATE [Concomitant]
     Indication: HYPERTENSION
     Dosage: UNK, QD
     Dates: start: 20090901
  8. WELLBUTRIN [Concomitant]
     Indication: DEPRESSION
     Dosage: UNK, BID
     Dates: start: 20081101

REACTIONS (9)
  - CARDIAC FAILURE CONGESTIVE [None]
  - WEIGHT DECREASED [None]
  - DECREASED APPETITE [None]
  - HYDROCEPHALUS [None]
  - INTRACRANIAL PRESSURE INCREASED [None]
  - BRAIN INJURY [None]
  - LEFT VENTRICULAR HYPERTROPHY [None]
  - ARNOLD-CHIARI MALFORMATION [None]
  - OFF LABEL USE [None]
